FAERS Safety Report 7150388-6 (Version None)
Quarter: 2010Q4

REPORT INFORMATION
  Report Type: 
  Country: None (occurrence: None)
  Receive Date: 20101210
  Receipt Date: 20101202
  Transmission Date: 20110411
  Serious: Yes (Death, Other)
  Sender: FDA-Public Use
  Company Number: JP-AMGEN-JPNCT2010003780

PATIENT

DRUGS (12)
  1. PANITUMUMAB [Suspect]
     Indication: COLORECTAL CANCER
     Dosage: 6 MG/KG, Q2WK
     Route: 041
     Dates: start: 20100621, end: 20100807
  2. FLUOROURACIL [Suspect]
     Indication: COLORECTAL CANCER
     Route: 040
     Dates: start: 20100621, end: 20100807
  3. FLUOROURACIL [Suspect]
     Route: 041
     Dates: start: 20100621, end: 20100807
  4. IRINOTECAN HYDROCHLORIDE [Suspect]
     Indication: COLORECTAL CANCER
     Route: 041
     Dates: start: 20100621, end: 20100807
  5. CALCIUM LEVOFOLINATE [Concomitant]
     Indication: COLORECTAL CANCER
     Route: 041
     Dates: start: 20100621, end: 20100807
  6. ANTIHISTAMINES [Concomitant]
     Indication: PROPHYLAXIS
     Route: 065
  7. CORTICOSTEROIDS [Concomitant]
     Indication: PROPHYLAXIS
     Route: 065
  8. DECADRON [Concomitant]
     Route: 042
  9. GRANISETRON HCL [Concomitant]
     Route: 042
  10. URINORM [Concomitant]
     Indication: HYPERURICAEMIA
     Route: 048
  11. DAIKENTYUTO [Concomitant]
     Indication: ABDOMINAL ADHESIONS
     Route: 048
  12. AMLODIN [Concomitant]
     Route: 048

REACTIONS (5)
  - ACNE [None]
  - COLORECTAL CANCER [None]
  - ILEUS [None]
  - PARONYCHIA [None]
  - WHITE BLOOD CELL COUNT DECREASED [None]
